FAERS Safety Report 9768408 (Version 1)
Quarter: 2013Q4

REPORT INFORMATION
  Report Type: Spontaneous
  Country: US (occurrence: US)
  Receive Date: 20131217
  Receipt Date: 20131217
  Transmission Date: 20140711
  Serious: Yes (Hospitalization, Other)
  Sender: FDA-Public Use
  Company Number: US-ASTRAZENECA-2013SE90151

PATIENT
  Age: 70 Year
  Sex: Male
  Weight: 84.8 kg

DRUGS (17)
  1. SYMBICORT [Suspect]
     Indication: ASTHMA
     Dosage: 160/4.5 MCG 2 PUFFS BID
     Route: 055
     Dates: start: 201309, end: 20131205
  2. SYMBICORT [Suspect]
     Indication: CHRONIC OBSTRUCTIVE PULMONARY DISEASE
     Dosage: 160/4.5 MCG 2 PUFFS BID
     Route: 055
     Dates: start: 201309, end: 20131205
  3. LISINOPRIL [Suspect]
     Indication: HYPERTENSION
     Route: 048
  4. OMEPRAZOLE [Suspect]
     Indication: HYPERCHLORHYDRIA
     Route: 048
  5. CARDIA XT [Concomitant]
     Indication: ATRIAL FIBRILLATION
  6. VENTOLIN [Concomitant]
     Dosage: 2 PUFFS Q4H
  7. ADDITIONAL INHALER NOT CLARIFIED [Concomitant]
     Dosage: 2 PUFFS Q4H
  8. BUSPIRONE [Concomitant]
     Indication: ANXIETY
  9. FLOMAX [Concomitant]
     Indication: PROSTATIC DISORDER
  10. ISOSOROBIDE DINATRATE [Concomitant]
     Indication: CARDIAC DISORDER
     Dosage: BID
  11. NEBULIZER [Concomitant]
     Dosage: 0.5 Q4H
  12. AUGMENTIN-SECOND ROUND [Concomitant]
     Indication: PNEUMONIA
     Dosage: 50 MG NR
  13. PENICILLIN VK [Concomitant]
     Indication: PNEUMONIA
  14. ZITHROMAX PACK [Concomitant]
     Indication: PNEUMONIA
     Dosage: 5 DAYS Q6H
  15. UNSPECIFIED DIRUETIC [Concomitant]
  16. OXYGEN THERAPY [Concomitant]
  17. OXYGEN THERAPY [Concomitant]

REACTIONS (63)
  - Coronary artery disease [Not Recovered/Not Resolved]
  - Pneumonia [Not Recovered/Not Resolved]
  - Hypertension [Not Recovered/Not Resolved]
  - Ejection fraction decreased [Not Recovered/Not Resolved]
  - Haemorrhage subepidermal [Not Recovered/Not Resolved]
  - Faeces discoloured [Not Recovered/Not Resolved]
  - Intestinal haemorrhage [Not Recovered/Not Resolved]
  - Heart rate increased [Not Recovered/Not Resolved]
  - Prostatic disorder [Not Recovered/Not Resolved]
  - Bronchospasm paradoxical [Not Recovered/Not Resolved]
  - Angina pectoris [Not Recovered/Not Resolved]
  - Ventricular extrasystoles [Not Recovered/Not Resolved]
  - Electrocardiogram QT prolonged [Not Recovered/Not Resolved]
  - Arrhythmia [Not Recovered/Not Resolved]
  - Oxygen saturation decreased [Not Recovered/Not Resolved]
  - Dysphonia [Not Recovered/Not Resolved]
  - Tremor [Not Recovered/Not Resolved]
  - Hypotension [Not Recovered/Not Resolved]
  - Aggression [Not Recovered/Not Resolved]
  - Anger [Not Recovered/Not Resolved]
  - Dyskinesia [Not Recovered/Not Resolved]
  - Throat irritation [Not Recovered/Not Resolved]
  - Nasal inflammation [Not Recovered/Not Resolved]
  - Sinus congestion [Not Recovered/Not Resolved]
  - Nasal congestion [Not Recovered/Not Resolved]
  - Dry mouth [Not Recovered/Not Resolved]
  - Gastrointestinal inflammation [Not Recovered/Not Resolved]
  - Muscle spasms [Not Recovered/Not Resolved]
  - Arthralgia [Not Recovered/Not Resolved]
  - Insomnia [Not Recovered/Not Resolved]
  - Pyrexia [Not Recovered/Not Resolved]
  - Myalgia [Not Recovered/Not Resolved]
  - Pain [Not Recovered/Not Resolved]
  - Muscle spasms [Not Recovered/Not Resolved]
  - Dysgeusia [Not Recovered/Not Resolved]
  - Rash generalised [Not Recovered/Not Resolved]
  - Headache [Not Recovered/Not Resolved]
  - Dyspnoea [Not Recovered/Not Resolved]
  - Pruritus [Not Recovered/Not Resolved]
  - Depression [Not Recovered/Not Resolved]
  - Vomiting [Not Recovered/Not Resolved]
  - Diarrhoea [Not Recovered/Not Resolved]
  - Abdominal pain upper [Not Recovered/Not Resolved]
  - Contusion [Not Recovered/Not Resolved]
  - Blood pressure inadequately controlled [Not Recovered/Not Resolved]
  - Asthma [Not Recovered/Not Resolved]
  - Chronic obstructive pulmonary disease [Not Recovered/Not Resolved]
  - Mental disorder [Not Recovered/Not Resolved]
  - Adverse event [Unknown]
  - Asthenia [Unknown]
  - Gait disturbance [Unknown]
  - Influenza like illness [Unknown]
  - Palpitations [Unknown]
  - Increased upper airway secretion [Unknown]
  - Nervousness [Unknown]
  - Dizziness [Unknown]
  - Malaise [Unknown]
  - Hyperchlorhydria [Unknown]
  - Pneumonia [Unknown]
  - Asthenia [Unknown]
  - Adverse event [Unknown]
  - Fear of death [Unknown]
  - Intentional drug misuse [Unknown]
